FAERS Safety Report 18940422 (Version 2)
Quarter: 2021Q2

REPORT INFORMATION
  Report Type: Spontaneous
  Country: FR (occurrence: FR)
  Receive Date: 20210225
  Receipt Date: 20210407
  Transmission Date: 20210717
  Serious: Yes (Hospitalization, Other)
  Sender: FDA-Public Use
  Company Number: FR-PFIZER INC-2021160035

PATIENT
  Age: 84 Year
  Sex: Female
  Weight: 56.7 kg

DRUGS (2)
  1. ATORVASTATIN CALCIUM. [Suspect]
     Active Substance: ATORVASTATIN CALCIUM
     Dosage: 40 MG
     Route: 048
     Dates: end: 20210127
  2. ZYVOXID [Suspect]
     Active Substance: LINEZOLID
     Dosage: 1200 MG
     Route: 048
     Dates: start: 20210120, end: 20210125

REACTIONS (1)
  - Cholestasis [Recovering/Resolving]

NARRATIVE: CASE EVENT DATE: 20210126
